FAERS Safety Report 7030980-X (Version None)
Quarter: 2010Q4

REPORT INFORMATION
  Report Type: 
  Country: None (occurrence: None)
  Receive Date: 20101006
  Receipt Date: 20100129
  Transmission Date: 20110411
  Serious: No
  Sender: FDA-Public Use
  Company Number: US-BRISTOL-MYERS SQUIBB COMPANY-14953814

PATIENT
  Sex: Female

DRUGS (1)
  1. KENALOG-40 [Suspect]
     Indication: BACK PAIN
     Dosage: 1 DOSAGEFORM = 1 VIAL OF KENALOG-40MG
     Dates: start: 20091229

REACTIONS (3)
  - BACK PAIN [None]
  - NASOPHARYNGITIS [None]
  - PARAESTHESIA [None]
